FAERS Safety Report 12847396 (Version 2)
Quarter: 2016Q4

REPORT INFORMATION
  Report Type: Spontaneous
  Country: US (occurrence: US)
  Receive Date: 20161014
  Receipt Date: 20161107
  Transmission Date: 20170207
  Serious: Yes (Other)
  Sender: FDA-Public Use
  Company Number: US-APOPHARMA USA, INC.-2016AP012782

PATIENT
  Age: 10 Month
  Sex: Male

DRUGS (1)
  1. ALKERAN [Suspect]
     Active Substance: MELPHALAN
     Indication: RETINOBLASTOMA
     Dosage: 25 ?G, OTHER
     Route: 050

REACTIONS (2)
  - Retinopathy haemorrhagic [Recovered/Resolved]
  - Chorioretinal atrophy [Recovered/Resolved]
